FAERS Safety Report 20658038 (Version 1)
Quarter: 2022Q1

REPORT INFORMATION
  Report Type: Spontaneous
  Country: US (occurrence: US)
  Receive Date: 20220331
  Receipt Date: 20220331
  Transmission Date: 20220423
  Serious: No
  Sender: FDA-Public Use
  Company Number: US-SANOFI-01029662

PATIENT
  Sex: Male

DRUGS (4)
  1. DUPIXENT [Suspect]
     Active Substance: DUPILUMAB
  2. IBUPROFEN [Concomitant]
     Active Substance: IBUPROFEN
     Indication: Back disorder
  3. IBUPROFEN [Concomitant]
     Active Substance: IBUPROFEN
  4. MELOXICAM [Concomitant]
     Active Substance: MELOXICAM
     Indication: Back disorder
     Dosage: 15 MG, QD

REACTIONS (2)
  - Swelling [Unknown]
  - Pruritus [Unknown]
